FAERS Safety Report 8271688 (Version 8)
Quarter: 2012Q4

REPORT INFORMATION
  Report Type: 
  Country: US (occurrence: US)
  Receive Date: 20111201
  Receipt Date: 20121226
  Transmission Date: 20130627
  Serious: Yes (Life-Threatening, Other)
  Sender: FDA-Public Use
  Company Number: US-ASTRAZENECA-2011SE49496

PATIENT
  Age: 74 Year
  Sex: Female
  Weight: 52.6 kg

DRUGS (18)
  1. SYMBICORT PMDI [Suspect]
     Indication: CHRONIC OBSTRUCTIVE PULMONARY DISEASE
     Dosage: 160/4.5 MCG, ONE PUFF TWO TIMES A DAY
     Route: 055
     Dates: start: 2009
  2. SYMBICORT PMDI [Suspect]
     Indication: ASTHMA
     Dosage: 160/4.5 MCG, ONE PUFF TWO TIMES A DAY
     Route: 055
     Dates: start: 2009
  3. SYMBICORT PMDI [Suspect]
     Indication: CHRONIC OBSTRUCTIVE PULMONARY DISEASE
     Dosage: TWO INHALATIONS, TWO TIMES A DAY
     Route: 055
     Dates: start: 2009
  4. SYMBICORT PMDI [Suspect]
     Indication: ASTHMA
     Dosage: TWO INHALATIONS, TWO TIMES A DAY
     Route: 055
     Dates: start: 2009
  5. NEXIUM EERD [Suspect]
     Indication: GASTROOESOPHAGEAL REFLUX DISEASE
     Route: 048
     Dates: start: 2007
  6. ADVAIR [Concomitant]
  7. DUONEB [Concomitant]
  8. ALLEGRA [Concomitant]
  9. COMBIVENT [Concomitant]
  10. NEBULIZER [Concomitant]
  11. DIOVAN [Concomitant]
     Indication: HYPERTENSION
     Route: 048
  12. ZYRTEC HCL [Concomitant]
     Indication: MULTIPLE ALLERGIES
     Dosage: 5/120 MG DAILY
     Route: 048
  13. SERTRALINE [Concomitant]
     Indication: INSOMNIA
     Route: 048
  14. TEMAZEPAM [Concomitant]
     Indication: DEPRESSION
     Route: 048
  15. ATROVENT [Concomitant]
     Indication: CHRONIC OBSTRUCTIVE PULMONARY DISEASE
     Dosage: QID
     Route: 055
  16. ALBUTEROL [Concomitant]
     Indication: CHRONIC OBSTRUCTIVE PULMONARY DISEASE
     Dosage: QID
     Route: 055
  17. PROMETH COD [Concomitant]
     Indication: CHRONIC OBSTRUCTIVE PULMONARY DISEASE
     Dosage: PRN
     Route: 048
  18. CODEINE [Concomitant]
     Indication: PAIN IN EXTREMITY
     Dosage: PRN
     Route: 048

REACTIONS (24)
  - Respiratory arrest [Unknown]
  - Respiratory failure [Unknown]
  - Syncope [Unknown]
  - Hand fracture [Unknown]
  - Lung abscess [Unknown]
  - Hand fracture [Not Recovered/Not Resolved]
  - Joint dislocation [Not Recovered/Not Resolved]
  - Dyspnoea [Unknown]
  - Pain [Unknown]
  - Lung infection [Unknown]
  - Ear infection [Unknown]
  - Hernia [Unknown]
  - Pneumonia [Unknown]
  - Bronchitis [Unknown]
  - Sinusitis [Unknown]
  - Hypertension [Unknown]
  - Malaise [Unknown]
  - Dysphonia [Unknown]
  - Respiratory fume inhalation disorder [Recovering/Resolving]
  - Depression [Unknown]
  - Incorrect dose administered [Unknown]
  - Drug dose omission [Unknown]
  - Drug effect decreased [Unknown]
  - Drug ineffective [Unknown]
